FAERS Safety Report 15126712 (Version 7)
Quarter: 2018Q4

REPORT INFORMATION
  Report Type: Spontaneous
  Country: US (occurrence: US)
  Receive Date: 20180710
  Receipt Date: 20181119
  Transmission Date: 20190204
  Serious: Yes (Other)
  Sender: FDA-Public Use
  Company Number: US-GLAXOSMITHKLINE-US2018122104

PATIENT
  Age: 70 Year
  Sex: Male

DRUGS (2)
  1. AVODART [Suspect]
     Active Substance: DUTASTERIDE
     Indication: HAEMATURIA
  2. AVODART [Suspect]
     Active Substance: DUTASTERIDE
     Indication: PROSTATOMEGALY
     Dosage: 0.5 MG, 1D
     Route: 048
     Dates: start: 2013

REACTIONS (6)
  - Product complaint [Unknown]
  - Haemorrhage [Recovered/Resolved]
  - Prostatic haemorrhage [Not Recovered/Not Resolved]
  - Gastric disorder [Unknown]
  - Urinary tract infection [Not Recovered/Not Resolved]
  - Psoriasis [Recovered/Resolved]

NARRATIVE: CASE EVENT DATE: 201804
